FAERS Safety Report 6483429-X (Version None)
Quarter: 2009Q4

REPORT INFORMATION
  Report Type: 
  Country: None (occurrence: None)
  Receive Date: 20091209
  Receipt Date: 20091201
  Transmission Date: 20100525
  Serious: Yes (Other)
  Sender: FDA-Public Use
  Company Number: US-PFIZER INC-2009305016

PATIENT
  Age: 57 Year
  Sex: Female

DRUGS (2)
  1. GLUCOTROL [Suspect]
  2. GLUCOPHAGE [Suspect]

REACTIONS (2)
  - BLOOD GLUCOSE INCREASED [None]
  - VITRECTOMY [None]
